FAERS Safety Report 13163797 (Version 2)
Quarter: 2017Q1

REPORT INFORMATION
  Report Type: Spontaneous
  Country: US (occurrence: US)
  Receive Date: 20170130
  Receipt Date: 20170207
  Transmission Date: 20170428
  Serious: Yes (Other)
  Sender: FDA-Public Use
  Company Number: US-BAYER-2017-012948

PATIENT
  Age: 71 Year
  Sex: Female

DRUGS (7)
  1. BUPIVACAIN [Concomitant]
     Active Substance: BUPIVACAINE
  2. BAYER LOW DOSE [Suspect]
     Active Substance: ASPIRIN
     Dosage: UNK
  3. HEPARIN [Suspect]
     Active Substance: HEPARIN SODIUM
     Indication: THROMBOSIS PROPHYLAXIS
     Dosage: 5000 DF, BID
  4. LIDOCAINE W/EPINEPHRIN [Concomitant]
  5. BAYER ASPIRIN [Suspect]
     Active Substance: ASPIRIN
     Indication: CORONARY ARTERY DISEASE
     Dosage: UNK
  6. HYDROMORPHONE [Concomitant]
     Active Substance: HYDROMORPHONE
  7. HEPARIN [Suspect]
     Active Substance: HEPARIN SODIUM
     Indication: THROMBOSIS PROPHYLAXIS
     Dosage: 5000 DF, 20 MINUTES AFTER THE EPIDURAL CATHETER PLACEMENT

REACTIONS (4)
  - Drug administration error [Recovered/Resolved]
  - Spinal column stenosis [None]
  - Spinal epidural haematoma [Recovered/Resolved]
  - Labelled drug-drug interaction medication error [Recovered/Resolved]
